FAERS Safety Report 15440434 (Version 1)
Quarter: 2018Q3

REPORT INFORMATION
  Report Type: Spontaneous
  Country: TR (occurrence: TR)
  Receive Date: 20180928
  Receipt Date: 20180928
  Transmission Date: 20181010
  Serious: Yes (Other)
  Sender: FDA-Public Use
  Company Number: PHHY2018TR110000

PATIENT
  Age: 29 Year
  Sex: Male

DRUGS (1)
  1. PASIREOTIDE. [Suspect]
     Active Substance: PASIREOTIDE
     Indication: PITUITARY-DEPENDENT CUSHING^S SYNDROME
     Dosage: 600 UG, BID
     Route: 058

REACTIONS (3)
  - Eyelid ptosis [Unknown]
  - Hyperglycaemia [Recovering/Resolving]
  - Pituitary tumour benign [Unknown]
